FAERS Safety Report 9279158 (Version 3)
Quarter: 2013Q2

REPORT INFORMATION
  Report Type: Spontaneous
  Country: US (occurrence: US)
  Receive Date: 20130508
  Receipt Date: 20130524
  Transmission Date: 20140414
  Serious: Yes (Hospitalization)
  Sender: FDA-Public Use
  Company Number: US-BRISTOL-MYERS SQUIBB COMPANY-18595876

PATIENT
  Age: 68 Year
  Sex: Female

DRUGS (8)
  1. SPRYCEL (CML) TABS 70 MG [Suspect]
     Dosage: LAST DOSE-9APR13, DOSE REDUCED TO 50 MG
  2. BABY ASPIRIN [Concomitant]
  3. BROMELAIN [Concomitant]
     Dosage: HCP SYRUP
  4. HYDROCODONE [Concomitant]
     Dosage: 1DF=10/100 UNITS NOS
  5. TRAZODONE HCL [Concomitant]
  6. OXYCONTIN [Concomitant]
     Dosage: AT NIGHT
  7. FLEXERIL [Concomitant]
  8. VALIUM [Concomitant]

REACTIONS (5)
  - Pneumonia [Unknown]
  - Cardiac disorder [Unknown]
  - Blood pressure fluctuation [Unknown]
  - Abdominal pain upper [Unknown]
  - Muscle spasms [Unknown]
